FAERS Safety Report 5363485-2 (Version None)
Quarter: 2007Q2

REPORT INFORMATION
  Report Type: 
  Country: None (occurrence: None)
  Receive Date: 20070620
  Receipt Date: 20070612
  Transmission Date: 20071010
  Serious: Yes (Hospitalization)
  Sender: FDA-Public Use
  Company Number: ES-ROCHE-502008

PATIENT
  Age: 56 Year
  Sex: Female
  Weight: 63 kg

DRUGS (5)
  1. BONIVA [Suspect]
     Indication: OSTEOPOROSIS
     Dosage: FORM: COATED TABLET
     Route: 048
     Dates: start: 20070324, end: 20070324
  2. EUTIROX [Concomitant]
     Route: 048
     Dates: start: 19920101
  3. COZAAR [Concomitant]
     Indication: HYPERTENSION
     Dosage: INDICATION REPORTED: UNSPECIFIED HYPERTENSION FORM: COATED TABLET
     Route: 048
     Dates: start: 20050101
  4. ESIDRIX [Concomitant]
     Indication: HYPERTENSION
     Dosage: INDICATION REPORTED: UNSPECIFIED HYPERTENSION
     Route: 048
     Dates: start: 20020101
  5. CAOSINA [Concomitant]
     Route: 048
     Dates: start: 20070301

REACTIONS (6)
  - BLOOD LACTATE DEHYDROGENASE INCREASED [None]
  - C-REACTIVE PROTEIN INCREASED [None]
  - HYPERTONIA [None]
  - INFLUENZA LIKE ILLNESS [None]
  - PARAESTHESIA [None]
  - PYREXIA [None]
